FAERS Safety Report 5089550-5 (Version None)
Quarter: 2006Q3

REPORT INFORMATION
  Report Type: 
  Country: None (occurrence: None)
  Receive Date: 20060727
  Receipt Date: 20060605
  Transmission Date: 20061208
  Serious: Yes (Other)
  Sender: FDA-Public Use
  Company Number: 2006073143

PATIENT
  Age: 82 Year
  Sex: Female

DRUGS (4)
  1. LYRICA [Suspect]
     Indication: ARTHRALGIA
     Dosage: 300 MG (150 MG, 2 IN 1 D), UNKNOWN
     Dates: start: 20060501
  2. SYNTHROID [Concomitant]
  3. VYTORIN [Concomitant]
  4. IBUPROFEN [Concomitant]

REACTIONS (3)
  - DRUG INEFFECTIVE [None]
  - UNEVALUABLE EVENT [None]
  - VISION BLURRED [None]
